FAERS Safety Report 15424669 (Version 2)
Quarter: 2018Q4

REPORT INFORMATION
  Report Type: Spontaneous
  Country: JP (occurrence: JP)
  Receive Date: 20180925
  Receipt Date: 20181108
  Transmission Date: 20190204
  Serious: Yes (Disabling)
  Sender: FDA-Public Use
  Company Number: JP-EISAI MEDICAL RESEARCH-EC-2018-045397

PATIENT
  Age: 64 Year
  Sex: Male
  Weight: 68 kg

DRUGS (12)
  1. PARIET [Suspect]
     Active Substance: RABEPRAZOLE SODIUM
     Dosage: BRAND PARIET
     Route: 048
     Dates: start: 20130809, end: 20130907
  2. URSO [Suspect]
     Active Substance: URSODIOL
     Indication: LIVER DISORDER
     Route: 048
     Dates: start: 20111104, end: 20130809
  3. WARFARIN [Suspect]
     Active Substance: WARFARIN
     Indication: ATRIAL FIBRILLATION
     Route: 048
     Dates: start: 20111104
  4. BEZATOL SR [Suspect]
     Active Substance: BEZAFIBRATE
     Indication: HYPERLIPIDAEMIA
     Route: 048
     Dates: start: 20111104, end: 20130809
  5. CIBENOL [Suspect]
     Active Substance: CIFENLINE
     Indication: ATRIAL FIBRILLATION
     Route: 048
     Dates: start: 20080912, end: 20130809
  6. PARIET [Suspect]
     Active Substance: RABEPRAZOLE SODIUM
     Dosage: GENERIC PARIET
     Route: 048
     Dates: start: 20130319, end: 20130808
  7. BLOPRESS [Suspect]
     Active Substance: CANDESARTAN CILEXETIL
     Indication: HYPERTENSION
     Route: 048
     Dates: start: 20080912, end: 20130809
  8. ARTIST [Concomitant]
     Active Substance: CARVEDILOL
     Indication: CARDIAC FAILURE CHRONIC
     Route: 048
     Dates: start: 20111104
  9. DIOVAN [Concomitant]
     Active Substance: VALSARTAN
     Indication: HYPERTENSION
     Route: 048
     Dates: start: 20130809, end: 20130905
  10. PARIET [Suspect]
     Active Substance: RABEPRAZOLE SODIUM
     Indication: GASTROOESOPHAGEAL REFLUX DISEASE
     Dosage: BRAND PARIET
     Route: 048
     Dates: start: 20120825, end: 20130318
  11. URINORM [Concomitant]
     Active Substance: BENZBROMARONE
     Indication: HYPERURICAEMIA
     Route: 048
     Dates: start: 20130809, end: 20130816
  12. ALLOPURINOL. [Suspect]
     Active Substance: ALLOPURINOL
     Indication: HYPERURICAEMIA
     Route: 048
     Dates: start: 20080912, end: 20130809

REACTIONS (1)
  - Nephropathy toxic [Unknown]

NARRATIVE: CASE EVENT DATE: 20130809
